FAERS Safety Report 11904586 (Version 1)
Quarter: 2016Q1

REPORT INFORMATION
  Report Type: Spontaneous
  Country: US (occurrence: US)
  Receive Date: 20160108
  Receipt Date: 20160108
  Transmission Date: 20160526
  Serious: Yes (Other)
  Sender: FDA-Public Use
  Company Number: US-ROCHE-1610860

PATIENT
  Age: 67 Year
  Sex: Female
  Weight: 89.89 kg

DRUGS (2)
  1. ACTIVASE [Suspect]
     Active Substance: ALTEPLASE
     Indication: PRODUCT USED FOR UNKNOWN INDICATION
     Dosage: STAT X1
     Route: 042
     Dates: start: 20150609, end: 20150609
  2. ACTIVASE [Suspect]
     Active Substance: ALTEPLASE
     Dosage: X1
     Route: 040
     Dates: start: 20150609, end: 20150609

REACTIONS (1)
  - Cerebral haemorrhage [Recovering/Resolving]

NARRATIVE: CASE EVENT DATE: 20150609
